FAERS Safety Report 12389261 (Version 1)
Quarter: 2016Q2

REPORT INFORMATION
  Report Type: Spontaneous
  Country: US (occurrence: US)
  Receive Date: 20160520
  Receipt Date: 20160520
  Transmission Date: 20160815
  Serious: Yes (Death, Life-Threatening, Hospitalization, Other)
  Sender: FDA-Public Use
  Company Number: US-JNJFOC-20160509593

PATIENT

DRUGS (2)
  1. ACETAMINOPHEN. [Suspect]
     Active Substance: ACETAMINOPHEN
     Indication: PRODUCT USED FOR UNKNOWN INDICATION
     Route: 065
  2. ACETAMINOPHEN. [Suspect]
     Active Substance: ACETAMINOPHEN
     Route: 065

REACTIONS (19)
  - Hepatorenal syndrome [Unknown]
  - Coma hepatic [Unknown]
  - Coagulopathy [Unknown]
  - Accidental poisoning [Unknown]
  - Accidental overdose [Unknown]
  - Hepatic encephalopathy [Unknown]
  - Jaundice [Unknown]
  - Fall [Unknown]
  - Hypersensitivity [Unknown]
  - Transaminases increased [Unknown]
  - Hepatotoxicity [Unknown]
  - Death [Fatal]
  - Acute hepatic failure [Unknown]
  - Choking [Unknown]
  - Choluria [Unknown]
  - Hepatic necrosis [Unknown]
  - Poisoning [Unknown]
  - Hepatitis [Unknown]
  - Accidental exposure to product [Unknown]
